FAERS Safety Report 4887932-5 (Version None)
Quarter: 2006Q1

REPORT INFORMATION
  Report Type: 
  Country: None (occurrence: None)
  Receive Date: 20060123
  Receipt Date: 20050503
  Transmission Date: 20060701
  Serious: Yes (Hospitalization)
  Sender: FDA-Public Use
  Company Number: US-MERCK-0505USA00504

PATIENT
  Age: 64 Year
  Sex: Male

DRUGS (6)
  1. VIOXX [Suspect]
     Indication: ARTHRALGIA
     Route: 048
     Dates: start: 20010101
  2. AMITRIPTYLINE HYDROCHLORIDE [Concomitant]
     Route: 048
  3. PRILOSEC [Concomitant]
     Route: 048
  4. ADVAIR DISKUS 250/50 [Concomitant]
     Route: 055
  5. FLOMAX [Concomitant]
     Route: 048
  6. IMDUR [Suspect]
     Route: 048

REACTIONS (17)
  - AGGRESSION [None]
  - ATRIAL FIBRILLATION [None]
  - ATRIAL TACHYCARDIA [None]
  - BLOOD PRESSURE INCREASED [None]
  - BRONCHIAL HYPERACTIVITY [None]
  - CARDIAC FAILURE CONGESTIVE [None]
  - CHEST PAIN [None]
  - CHRONIC OBSTRUCTIVE PULMONARY DISEASE [None]
  - CONFUSIONAL STATE [None]
  - CORONARY ARTERY DISEASE [None]
  - HELICOBACTER INFECTION [None]
  - MEDIASTINAL HAEMORRHAGE [None]
  - MYOCARDIAL INFARCTION [None]
  - OEDEMA PERIPHERAL [None]
  - OESOPHAGITIS [None]
  - PLEURAL EFFUSION [None]
  - TUBERCULOSIS [None]
